FAERS Safety Report 22641856 (Version 2)
Quarter: 2023Q2

REPORT INFORMATION
  Report Type: Report from Study
  Country: DE (occurrence: None)
  Receive Date: 20230626
  Receipt Date: 20230630
  Transmission Date: 20230722
  Serious: Yes (Hospitalization)
  Sender: FDA-Public Use
  Company Number: DE-ROCHE-3373026

PATIENT
  Age: 81 Year
  Sex: Male

DRUGS (8)
  1. RITUXIMAB [Suspect]
     Active Substance: RITUXIMAB
     Indication: B-cell lymphoma
     Dosage: LAST DATE PRIOR TO SAE 28/FEB/2012
     Route: 041
     Dates: start: 20111025
  2. BENDAMUSTINE [Suspect]
     Active Substance: BENDAMUSTINE
     Indication: B-cell lymphoma
     Dosage: DOSE: 300-360MG, LAST DOSE PRIOR TO SAE 28/FEB/2012
     Route: 042
     Dates: start: 20111026
  3. LEVOTHYROXINE SODIUM [Concomitant]
     Active Substance: LEVOTHYROXINE SODIUM
  4. CANDESARTAN [Concomitant]
     Active Substance: CANDESARTAN
  5. SIMVASTATIN [Concomitant]
     Active Substance: SIMVASTATIN
  6. FOLIC ACID [Concomitant]
     Active Substance: FOLIC ACID
  7. URSODIOL [Concomitant]
     Active Substance: URSODIOL
  8. ASPIRIN [Concomitant]
     Active Substance: ASPIRIN

REACTIONS (1)
  - Guillain-Barre syndrome [Recovered/Resolved with Sequelae]

NARRATIVE: CASE EVENT DATE: 20130819
